FAERS Safety Report 9704248 (Version 2)
Quarter: 2014Q4

REPORT INFORMATION
  Report Type: Spontaneous
  Country: US (occurrence: US)
  Receive Date: 20131122
  Receipt Date: 20141124
  Transmission Date: 20150529
  Serious: No
  Sender: FDA-Public Use
  Company Number: US-MYLANLABS-2013S1004653

PATIENT
  Age: 82 Year
  Sex: Female

DRUGS (3)
  1. LISINOPRIL TABLETS [Suspect]
     Active Substance: LISINOPRIL
     Indication: BLOOD PRESSURE INCREASED
     Dosage: 10 MG,QD
     Route: 048
     Dates: start: 2011
  2. AMLODIPINE BESYLATE TABLETS, USP [Suspect]
     Active Substance: AMLODIPINE BESYLATE
     Indication: BLOOD PRESSURE INCREASED
     Dosage: 5 MG,QD
     Route: 048
     Dates: start: 2011, end: 201303
  3. AMLODIPINE [Suspect]
     Active Substance: AMLODIPINE BESYLATE
     Indication: BLOOD PRESSURE INCREASED
     Dosage: 5 MG,QD
     Route: 048
     Dates: start: 201303

REACTIONS (1)
  - Platelet count decreased [Not Recovered/Not Resolved]

NARRATIVE: CASE EVENT DATE: 20130221
